FAERS Safety Report 5139709-3 (Version None)
Quarter: 2006Q4

REPORT INFORMATION
  Report Type: 
  Country: None (occurrence: None)
  Receive Date: 20061024
  Receipt Date: 20061009
  Transmission Date: 20070319
  Serious: Yes (Hospitalization)
  Sender: FDA-Public Use
  Company Number: 2006RR-04061

PATIENT
  Age: 13 Month
  Sex: Male
  Weight: 12 kg

DRUGS (12)
  1. IBUPROFEN [Suspect]
     Indication: PYREXIA
     Dosage: 50 MG, PRN, ORAL
     Route: 048
     Dates: start: 20060727, end: 20060801
  2. ASPIRIN [Concomitant]
  3. BECLOMETHASONE DIPROPIONATE [Concomitant]
  4. BENZYLPENICILLIN [Concomitant]
  5. CEFTRIAXONE [Concomitant]
  6. CO-AMOXICLAV (AMOXICILLIN TRIHYDRATE, CLAVULANIC ACID) [Concomitant]
  7. DIFFLAM [Concomitant]
  8. FLUCOXACILLIN (FLUCLOXACILLIN) [Concomitant]
  9. NYSTATIN [Concomitant]
  10. ACETAMINOPHEN [Concomitant]
  11. PIRITON [Concomitant]
  12. SALBUTAMOL (SALBUTAMOL) [Concomitant]

REACTIONS (6)
  - DEHYDRATION [None]
  - FEEDING DISORDER [None]
  - OEDEMA [None]
  - PROTEINURIA [None]
  - PYREXIA [None]
  - RENAL IMPAIRMENT [None]
